FAERS Safety Report 6673562-1 (Version None)
Quarter: 2010Q2

REPORT INFORMATION
  Report Type: 
  Country: None (occurrence: None)
  Receive Date: 20100408
  Receipt Date: 20100329
  Transmission Date: 20101027
  Serious: Yes (Hospitalization)
  Sender: FDA-Public Use
  Company Number: IT-PFIZER INC-2010018766

PATIENT
  Age: 83 Year
  Sex: Female

DRUGS (4)
  1. NORVASC [Suspect]
     Dosage: 5 MG, DAILY
     Route: 048
     Dates: start: 20090131, end: 20100131
  2. ATENOLOL [Suspect]
     Dosage: 100 MG, DAILY
     Dates: start: 20090131, end: 20100131
  3. LASIX [Suspect]
     Dosage: 25 MG, DAILY
     Route: 048
     Dates: start: 20090131, end: 20100131
  4. ACETYLSALICYLIC ACID [Concomitant]
     Dosage: 100 MG
     Dates: start: 20090131, end: 20100131

REACTIONS (3)
  - ALTERED STATE OF CONSCIOUSNESS [None]
  - JOINT INJURY [None]
  - SYNCOPE [None]
